FAERS Safety Report 9314118 (Version 1)
Quarter: 2013Q2

REPORT INFORMATION
  Report Type: Spontaneous
  Country: US (occurrence: US)
  Receive Date: 20130529
  Receipt Date: 20130529
  Transmission Date: 20140414
  Serious: Yes (Hospitalization, Other)
  Sender: FDA-Public Use
  Company Number: US-ELI_LILLY_AND_COMPANY-US201305005924

PATIENT
  Sex: Male

DRUGS (2)
  1. CIALIS [Suspect]
     Dosage: 5 MG, PRN
     Dates: start: 201304
  2. ATENOLOL [Concomitant]
     Dosage: 1 DF, UNKNOWN

REACTIONS (2)
  - Carotid artery occlusion [Unknown]
  - Cerebrovascular accident [Unknown]
